FAERS Safety Report 8989052 (Version 1)
Quarter: 2012Q4

REPORT INFORMATION
  Report Type: 
  Country: US (occurrence: US)
  Receive Date: 20121228
  Receipt Date: 20121228
  Transmission Date: 20130627
  Serious: No
  Sender: FDA-Public Use
  Company Number: US-ELI_LILLY_AND_COMPANY-US201210008002

PATIENT
  Sex: Female
  Weight: 47.17 kg

DRUGS (2)
  1. HUMALOG LISPRO [Suspect]
     Indication: TYPE 2 DIABETES MELLITUS
     Dosage: UNK, unknown
  2. HUMALOG LISPRO [Suspect]
     Dosage: 40 u, qd
     Route: 058

REACTIONS (2)
  - Injection site bruising [Unknown]
  - Mobility decreased [Unknown]
